FAERS Safety Report 7770609-6 (Version None)
Quarter: 2011Q3

REPORT INFORMATION
  Report Type: 
  Country: None (occurrence: None)
  Receive Date: 20110922
  Receipt Date: 20110913
  Transmission Date: 20111222
  Serious: Yes (Other)
  Sender: FDA-Public Use
  Company Number: PHFR2011GB04843

PATIENT
  Sex: Male
  Weight: 45 kg

DRUGS (5)
  1. ZOPICLONE [Concomitant]
     Indication: INSOMNIA
     Dosage: 7.5 MG/DAY
     Route: 048
  2. CLOZAPINE [Suspect]
     Indication: SCHIZOPHRENIA
     Dosage: 125 MG/DAY
     Route: 048
     Dates: start: 20110331
  3. TIOTROPIUM [Concomitant]
     Indication: EMPHYSEMA
  4. SERETIDE [Concomitant]
     Indication: EMPHYSEMA
  5. CARBOCISTEINE [Concomitant]
     Indication: EMPHYSEMA

REACTIONS (6)
  - DIFFERENTIAL WHITE BLOOD CELL COUNT ABNORMAL [None]
  - WHITE BLOOD CELL COUNT DECREASED [None]
  - NEUTROPENIA [None]
  - RHINORRHOEA [None]
  - WHITE BLOOD CELL COUNT INCREASED [None]
  - NEUTROPHIL COUNT INCREASED [None]
